FAERS Safety Report 5805469-3 (Version None)
Quarter: 2008Q3

REPORT INFORMATION
  Report Type: 
  Country: None (occurrence: None)
  Receive Date: 20080708
  Receipt Date: 20080630
  Transmission Date: 20090109
  Serious: Yes (Hospitalization)
  Sender: FDA-Public Use
  Company Number: 2008AL007764

PATIENT
  Age: 88 Year
  Sex: Female
  Weight: 39.4629 kg

DRUGS (4)
  1. DIGOXIN [Suspect]
     Indication: ATRIAL FIBRILLATION
     Dosage: 0.125MCG, QD, PO; YEARS
     Route: 048
  2. COUMADIN [Concomitant]
  3. NORVASC [Concomitant]
  4. LISINOPRIL [Concomitant]

REACTIONS (2)
  - ASTHENIA [None]
  - THERAPEUTIC AGENT TOXICITY [None]
